FAERS Safety Report 14673232 (Version 1)
Quarter: 2018Q1

REPORT INFORMATION
  Report Type: Report from Study
  Country: US (occurrence: US)
  Receive Date: 20180323
  Receipt Date: 20180323
  Transmission Date: 20180509
  Serious: Yes (Hospitalization)
  Sender: FDA-Public Use
  Company Number: US-ASTELLAS-2018US013885

PATIENT
  Age: 51 Year
  Sex: Female

DRUGS (1)
  1. MIRABEGRON [Suspect]
     Active Substance: MIRABEGRON
     Indication: PRODUCT USED FOR UNKNOWN INDICATION
     Route: 048

REACTIONS (7)
  - Gait disturbance [Unknown]
  - Road traffic accident [Unknown]
  - Brain injury [Unknown]
  - Bladder dysfunction [Unknown]
  - Cerebral disorder [Unknown]
  - Seizure [Unknown]
  - Pain [Unknown]

NARRATIVE: CASE EVENT DATE: 20180304
